FAERS Safety Report 15976369 (Version 1)
Quarter: 2019Q1

REPORT INFORMATION
  Report Type: Spontaneous
  Country: US (occurrence: US)
  Receive Date: 20190218
  Receipt Date: 20190218
  Transmission Date: 20190418
  Serious: No
  Sender: FDA-Public Use
  Company Number: US-TEVA-2019-US-1003627

PATIENT
  Sex: Male

DRUGS (2)
  1. WARFARIN SODIUM TABLET TEVA [Suspect]
     Active Substance: WARFARIN SODIUM
     Indication: ANTICOAGULANT THERAPY
     Dosage: SWITCHING EVERY OTHER DAY
     Route: 065
  2. WARFARIN SODIUM TABLET TEVA [Suspect]
     Active Substance: WARFARIN SODIUM
     Dosage: SWITCHING EVERY OTHER DAY
     Route: 065

REACTIONS (2)
  - Pruritus [Unknown]
  - Rash [Unknown]
